FAERS Safety Report 8818800 (Version 1)
Quarter: 2012Q4

REPORT INFORMATION
  Report Type: 
  Country: US (occurrence: US)
  Receive Date: 20121001
  Receipt Date: 20121001
  Transmission Date: 20130627
  Serious: Yes (Other)
  Sender: FDA-Public Use
  Company Number: US-ROCHE-1130022

PATIENT
  Sex: Female
  Weight: 74 kg

DRUGS (9)
  1. HERCEPTIN [Suspect]
     Indication: BREAST CANCER
     Dosage: loading dose
     Route: 065
     Dates: start: 19990121
  2. HERCEPTIN [Suspect]
     Dosage: maintenance dose
     Route: 042
  3. CALCIUM [Concomitant]
  4. ZINC [Concomitant]
  5. IRON [Concomitant]
  6. VITAMIN D [Concomitant]
  7. VITAMIN E [Concomitant]
  8. MULTIVITAMIN [Concomitant]
  9. PAXIL [Concomitant]

REACTIONS (4)
  - Pleuritic pain [Recovering/Resolving]
  - Metastases to lung [Unknown]
  - Depression [Unknown]
  - Rales [Unknown]
